FAERS Safety Report 24980425 (Version 1)
Quarter: 2025Q1

REPORT INFORMATION
  Report Type: Spontaneous
  Country: TW (occurrence: TW)
  Receive Date: 20250218
  Receipt Date: 20250218
  Transmission Date: 20250408
  Serious: Yes (Other)
  Sender: GILEAD
  Company Number: TW-GILEAD-2025-0703514

PATIENT
  Age: 47 Year
  Sex: Female

DRUGS (2)
  1. TRODELVY [Suspect]
     Active Substance: SACITUZUMAB GOVITECAN-HZIY
     Indication: Hormone receptor positive HER2 negative breast cancer
     Route: 065
  2. TRODELVY [Suspect]
     Active Substance: SACITUZUMAB GOVITECAN-HZIY
     Indication: Hormone receptor negative HER2 positive breast cancer

REACTIONS (7)
  - Septic shock [Unknown]
  - Fungaemia [Unknown]
  - Neutropenia [Unknown]
  - Pyrexia [Unknown]
  - Anaemia [Unknown]
  - Alopecia [Unknown]
  - Decreased appetite [Unknown]
